FAERS Safety Report 4425037-8 (Version None)
Quarter: 2004Q3

REPORT INFORMATION
  Report Type: 
  Country: None (occurrence: None)
  Receive Date: 20040813
  Receipt Date: 20040803
  Transmission Date: 20050211
  Serious: Yes (Other)
  Sender: FDA-Public Use
  Company Number: 200417681GDDC

PATIENT
  Age: 32 Year
  Sex: Female

DRUGS (6)
  1. LEFLUNOMIDE [Suspect]
     Route: 048
     Dates: start: 20040429, end: 20040705
  2. SULFASALAZINE [Concomitant]
     Dates: start: 20030530, end: 20040223
  3. METHOTREXATE [Concomitant]
     Dates: start: 20030923, end: 20040705
  4. ALENDRONATE SODIUM [Concomitant]
     Indication: OSTEOPOROSIS
     Route: 048
     Dates: start: 20030701, end: 20040705
  5. CELECOXIB [Concomitant]
     Route: 048
     Dates: start: 20030530, end: 20040705
  6. FOLATE [Concomitant]
     Dates: start: 20020701, end: 20040705

REACTIONS (6)
  - ALANINE AMINOTRANSFERASE INCREASED [None]
  - ASPARTATE AMINOTRANSFERASE INCREASED [None]
  - ASTHENIA [None]
  - HEPATIC ENZYME INCREASED [None]
  - LETHARGY [None]
  - MEMORY IMPAIRMENT [None]
